FAERS Safety Report 5727974-0 (Version None)
Quarter: 2008Q2

REPORT INFORMATION
  Report Type: 
  Country: None (occurrence: None)
  Receive Date: 20080505
  Receipt Date: 20080310
  Transmission Date: 20081010
  Serious: No
  Sender: FDA-Public Use
  Company Number: US-BOEHRINGER INGELHEIM GMBH, GERMANY-2008-BP-03626BP

PATIENT
  Sex: Male

DRUGS (2)
  1. FLOMAX [Suspect]
     Indication: PROSTATOMEGALY
     Route: 048
     Dates: start: 20080305, end: 20080309
  2. FLOMAX [Suspect]
     Indication: URINE ANALYSIS ABNORMAL

REACTIONS (8)
  - COUGH [None]
  - NASAL CONGESTION [None]
  - NASAL DISCOMFORT [None]
  - ORAL HERPES [None]
  - PHARYNGOLARYNGEAL PAIN [None]
  - PRURITUS [None]
  - RHINORRHOEA [None]
  - URTICARIA [None]
